FAERS Safety Report 17692590 (Version 1)
Quarter: 2020Q2

REPORT INFORMATION
  Report Type: Report from Study
  Country: US (occurrence: US)
  Receive Date: 20200422
  Receipt Date: 20200422
  Transmission Date: 20200714
  Serious: Yes (Hospitalization)
  Sender: FDA-Public Use
  Company Number: US-BAYER-2020-016509

PATIENT
  Age: 50 Year
  Sex: Female

DRUGS (2)
  1. STIVARGA [Suspect]
     Active Substance: REGORAFENIB
     Indication: COLORECTAL CANCER
     Dosage: 80 MG, QD CYCLE IS 3 WEEKS ON 1 WEEK OFF
     Dates: start: 20200307
  2. STIVARGA [Suspect]
     Active Substance: REGORAFENIB
     Indication: BREAST CANCER
     Dosage: 120 MG DAILY FOR 21 DAYS OF 28 DAY CYCLE
     Route: 048
     Dates: start: 20200114

REACTIONS (22)
  - Neutropenia [Recovered/Resolved]
  - Hypoaesthesia [Unknown]
  - Diarrhoea [None]
  - Product dose omission [None]
  - Hospitalisation [Unknown]
  - Speech disorder [None]
  - Pyrexia [None]
  - Abdominal pain [Unknown]
  - Platelet count decreased [None]
  - Back pain [Unknown]
  - Blood bilirubin increased [None]
  - Off label use [None]
  - Pyrexia [Not Recovered/Not Resolved]
  - Nausea [None]
  - Haemoglobin decreased [None]
  - White blood cell count decreased [None]
  - Decreased appetite [None]
  - Weight decreased [None]
  - Asthenia [Recovering/Resolving]
  - Gait inability [None]
  - Pyrexia [Recovered/Resolved]
  - Loss of personal independence in daily activities [Not Recovered/Not Resolved]

NARRATIVE: CASE EVENT DATE: 202001
